FAERS Safety Report 7046113-X (Version None)
Quarter: 2010Q4

REPORT INFORMATION
  Report Type: 
  Country: None (occurrence: None)
  Receive Date: 20101014
  Receipt Date: 20101005
  Transmission Date: 20110411
  Serious: Yes (Other)
  Sender: FDA-Public Use
  Company Number: BR-PFIZER INC-2010126583

PATIENT
  Sex: Female
  Weight: 62 kg

DRUGS (1)
  1. CHAMPIX [Suspect]
     Indication: TOBACCO USER
     Dosage: UNK
     Route: 048

REACTIONS (3)
  - AGITATION [None]
  - DEPRESSION [None]
  - NERVOUS SYSTEM DISORDER [None]
